FAERS Safety Report 6273051-2 (Version None)
Quarter: 2009Q3

REPORT INFORMATION
  Report Type: 
  Country: None (occurrence: None)
  Receive Date: 20090715
  Receipt Date: 20090715
  Transmission Date: 20100115
  Serious: No
  Sender: FDA-Public Use
  Company Number: None

PATIENT
  Sex: Female
  Weight: 62.1428 kg

DRUGS (10)
  1. ZICAM GEL SWAB ZICON GLUCANICUM 2X ZICAM LLC [Suspect]
     Indication: COUGH
     Dosage: 1 SWAB 1 Q 4 HRS NASAL
     Route: 045
     Dates: start: 20080815, end: 20080915
  2. ZICAM GEL SWAB ZICON GLUCANICUM 2X ZICAM LLC [Suspect]
     Indication: SINUSITIS
     Dosage: 1 SWAB 1 Q 4 HRS NASAL
     Route: 045
     Dates: start: 20080815, end: 20080915
  3. ZPAK -ZITHROMYCIN- [Concomitant]
  4. CLARITIN [Concomitant]
  5. SUDAFED 12 HOUR [Concomitant]
  6. MUCINEX DM [Concomitant]
  7. ADVIL [Concomitant]
  8. LEVAQUIN [Concomitant]
  9. ROBITUSSIN [Concomitant]
  10. NASACORT [Concomitant]

REACTIONS (2)
  - AGEUSIA [None]
  - ANOSMIA [None]
